FAERS Safety Report 17344977 (Version 1)
Quarter: 2020Q1

REPORT INFORMATION
  Report Type: Spontaneous
  Country: IT (occurrence: IT)
  Receive Date: 20200129
  Receipt Date: 20200129
  Transmission Date: 20200409
  Serious: Yes (Other)
  Sender: FDA-Public Use
  Company Number: IT-PFIZER INC-2020038578

PATIENT
  Sex: Female

DRUGS (1)
  1. PREPIDIL [Suspect]
     Active Substance: DINOPROSTONE
     Dosage: UNK

REACTIONS (6)
  - Precipitate labour [Unknown]
  - Urethral stenosis [Unknown]
  - Hydronephrosis [Unknown]
  - Contraindicated product administered [Unknown]
  - Vaginal haemorrhage [Unknown]
  - Cervix haemorrhage uterine [Unknown]

NARRATIVE: CASE EVENT DATE: 2007
